FAERS Safety Report 8110617-9 (Version None)
Quarter: 2012Q1

REPORT INFORMATION
  Report Type: 
  Country: None (occurrence: None)
  Receive Date: 20120203
  Receipt Date: 20120127
  Transmission Date: 20120608
  Serious: No
  Sender: FDA-Public Use
  Company Number: US-PFIZER INC-2012004897

PATIENT
  Sex: Female
  Weight: 78 kg

DRUGS (13)
  1. DIAZEPAM [Concomitant]
     Dosage: 2 MG, 1X/DAY
  2. CALAN [Suspect]
     Dosage: 180 MG, 1X/DAY
     Route: 048
     Dates: start: 20100716
  3. TRAZODONE [Concomitant]
     Dosage: 150 MG, ONCE A DAY AT THE NIGHT TIME
  4. SUMATRIPTAN SUCCINATE AND NAPROXEN SODIUM [Concomitant]
     Indication: MIGRAINE
     Dosage: UNK
  5. CALAN [Suspect]
     Dosage: 120 MG, UNK
  6. THYROID TAB [Concomitant]
     Indication: HYPOTHYROIDISM
     Dosage: 60 MG, UNK
  7. CALAN [Suspect]
     Indication: HYPERTENSION
     Dosage: 180 MG, 1X/DAY
     Route: 048
     Dates: start: 20100201, end: 20110201
  8. VENTOLIN [Concomitant]
     Dosage: UNK
  9. TOPAMAX [Concomitant]
     Indication: MIGRAINE
     Dosage: 50 MG, 2X/DAY
  10. ADVAIR DISKUS 100/50 [Concomitant]
     Indication: ASTHMA
     Dosage: 250/50 MG, UNK
  11. PROGESTERONE [Concomitant]
     Dosage: 10 MG, 14 DAYS IN A MONTH
  12. CALAN [Suspect]
     Indication: MIGRAINE PROPHYLAXIS
     Dosage: 180 MG, 1X/DAY
     Route: 048
     Dates: start: 20110601
  13. CYMBALTA [Concomitant]
     Dosage: 120 MG, 1X/DAY

REACTIONS (4)
  - DRUG PRESCRIBING ERROR [None]
  - FLUID RETENTION [None]
  - MIGRAINE [None]
  - HEADACHE [None]
